FAERS Safety Report 21958477 (Version 1)
Quarter: 2023Q1

REPORT INFORMATION
  Report Type: Spontaneous
  Country: US (occurrence: None)
  Receive Date: 20230203
  Receipt Date: 20230203
  Transmission Date: 20230417
  Serious: Yes (Hospitalization)
  Sender: FDA-Public Use
  Company Number: None

PATIENT
  Age: 27 Year
  Sex: Female
  Weight: 79.38 kg

DRUGS (2)
  1. ARIPIPRAZOLE [Suspect]
     Active Substance: ARIPIPRAZOLE
  2. DULOXETINE [Suspect]
     Active Substance: DULOXETINE

REACTIONS (3)
  - Hypertension [None]
  - Pre-eclampsia [None]
  - Exposure during pregnancy [None]

NARRATIVE: CASE EVENT DATE: 20220119
